FAERS Safety Report 5950862-1 (Version None)
Quarter: 2008Q4

REPORT INFORMATION
  Report Type: 
  Country: None (occurrence: None)
  Receive Date: 20081112
  Receipt Date: 20081103
  Transmission Date: 20090506
  Serious: Yes (Death, Other)
  Sender: FDA-Public Use
  Company Number: JP-GENENTECH-270958

PATIENT

DRUGS (2)
  1. RITUXAN [Suspect]
     Indication: DIFFUSE LARGE B-CELL LYMPHOMA
     Dosage: 375 MG/M2, UNK
  2. CHEMOTHERAPY (UNK INGREDIENTS) [Concomitant]
     Indication: DIFFUSE LARGE B-CELL LYMPHOMA

REACTIONS (1)
  - PNEUMOCYSTIS JIROVECI PNEUMONIA [None]
